FAERS Safety Report 6359222-5 (Version None)
Quarter: 2009Q3

REPORT INFORMATION
  Report Type: 
  Country: None (occurrence: None)
  Receive Date: 20090917
  Receipt Date: 20090907
  Transmission Date: 20100115
  Serious: Yes (Other)
  Sender: FDA-Public Use
  Company Number: PHHY2009IL38484

PATIENT
  Age: 50 Year
  Sex: Female

DRUGS (2)
  1. ZOMETA [Suspect]
     Indication: BREAST CANCER METASTATIC
  2. AREDIA [Suspect]

REACTIONS (3)
  - NEPHROLITHIASIS [None]
  - OSTEONECROSIS [None]
  - TOOTH EXTRACTION [None]
